FAERS Safety Report 16641502 (Version 1)
Quarter: 2019Q3

REPORT INFORMATION
  Report Type: Spontaneous
  Country: GB (occurrence: GB)
  Receive Date: 20190729
  Receipt Date: 20190729
  Transmission Date: 20191004
  Serious: Yes (Hospitalization)
  Sender: FDA-Public Use
  Company Number: GB-SUN PHARMACEUTICAL INDUSTRIES LTD-2019R1-214701

PATIENT
  Age: 79 Year
  Sex: Female

DRUGS (1)
  1. PROPYLTHIOURACIL. [Suspect]
     Active Substance: PROPYLTHIOURACIL
     Indication: THYROTOXIC CRISIS
     Dosage: UNK
     Route: 065

REACTIONS (2)
  - Vasculitis [Unknown]
  - Glomerulonephritis rapidly progressive [Unknown]
